FAERS Safety Report 11572778 (Version 1)
Quarter: 2015Q3

REPORT INFORMATION
  Report Type: Spontaneous
  Country: US (occurrence: US)
  Receive Date: 20150916
  Receipt Date: 20150916
  Transmission Date: 20151125
  Serious: No
  Sender: FDA-Public Use
  Company Number: US-ELI_LILLY_AND_COMPANY-US200910005148

PATIENT
  Age: 93 Year
  Sex: Male

DRUGS (1)
  1. FORTEO [Suspect]
     Active Substance: TERIPARATIDE
     Indication: OSTEOPOROSIS

REACTIONS (6)
  - Fatigue [Unknown]
  - Dyspnoea [Unknown]
  - Back pain [Unknown]
  - Blood prolactin increased [Unknown]
  - Asthenia [Unknown]
  - Lung disorder [Unknown]
